FAERS Safety Report 5546826-2 (Version None)
Quarter: 2007Q4

REPORT INFORMATION
  Report Type: 
  Country: None (occurrence: None)
  Receive Date: 20071206
  Receipt Date: 20071130
  Transmission Date: 20080405
  Serious: Yes (Life-Threatening)
  Sender: FDA-Public Use
  Company Number: 114-21880-07111639

PATIENT
  Age: 59 Year
  Sex: Male
  Weight: 60 kg

DRUGS (4)
  1. REVLIMID [Suspect]
     Indication: MYELODYSPLASTIC SYNDROME
     Dosage: 25 MG, ORAL
     Route: 048
     Dates: start: 20060320, end: 20060322
  2. PANTOZOL (PANTOPRAZOLE SODIUM) [Concomitant]
  3. CEFTAZIDINE (CEFTAZIDIME) [Concomitant]
  4. HALDOL (HALOPERIDOL) (AMPOULES) [Concomitant]

REACTIONS (2)
  - BRADYCARDIA [None]
  - CARDIAC ARREST [None]
